FAERS Safety Report 13738740 (Version 1)
Quarter: 2017Q3

REPORT INFORMATION
  Report Type: Spontaneous
  Country: US (occurrence: US)
  Receive Date: 20170710
  Receipt Date: 20170710
  Transmission Date: 20171127
  Serious: Yes (Other)
  Sender: FDA-Public Use
  Company Number: US-SAOL THERAPEUTICS-2017SAO00505

PATIENT
  Sex: Male

DRUGS (2)
  1. BACLOFEN. [Suspect]
     Active Substance: BACLOFEN
     Indication: MUSCLE SPASTICITY
     Dosage: 299 ?G, \DAY
     Route: 037
     Dates: end: 20170308
  2. BACLOFEN. [Suspect]
     Active Substance: BACLOFEN
     Route: 048

REACTIONS (5)
  - Drug withdrawal syndrome [Unknown]
  - Tremor [Unknown]
  - Hyperhidrosis [Unknown]
  - Irritability [Unknown]
  - Headache [Unknown]
